FAERS Safety Report 8845232 (Version 1)
Quarter: 2012Q4

REPORT INFORMATION
  Report Type: 
  Country: DE (occurrence: DE)
  Receive Date: 20121017
  Receipt Date: 20121017
  Transmission Date: 20130627
  Serious: Yes (Hospitalization)
  Sender: FDA-Public Use
  Company Number: DE-PFIZER INC-2012253164

PATIENT
  Sex: Male
  Weight: 121 kg

DRUGS (11)
  1. SOMATROPIN [Suspect]
     Dosage: 0.4 mg, 1x/day
     Route: 058
     Dates: start: 20040616
  2. LISINOPRIL [Concomitant]
     Indication: ESSENTIAL HYPERTENSION
     Dosage: UNK
     Dates: start: 20000701
  3. TESTOSTERONE [Concomitant]
     Indication: BLOOD LUTEINISING HORMONE DECREASED
     Dosage: UNK
     Dates: start: 20030819
  4. TESTOSTERONE [Concomitant]
     Indication: BLOOD FOLLICLE STIMULATING HORMONE DECREASED
  5. TESTOSTERONE [Concomitant]
     Indication: HYPOGONADISM MALE
  6. TIOTROPIUM [Concomitant]
     Indication: TRAUMATIC SHOCK
     Dosage: UNK
     Dates: start: 20000701
  7. L-THYROXIN [Concomitant]
     Indication: BLOOD THYROID STIMULATING HORMONE DECREASED
     Dosage: UNK
     Dates: start: 20051207
  8. L-THYROXIN [Concomitant]
     Indication: PRIMARY HYPOTHYROIDISM
  9. SYMBICORT [Concomitant]
     Indication: ASTHMA
     Dosage: UNK
     Dates: start: 20051208
  10. HYDROCORTISONE [Concomitant]
     Indication: BLOOD CORTICOTROPHIN DECREASED
     Dosage: UNK
     Dates: start: 20030819
  11. SPIRIVA [Concomitant]
     Indication: INJURY
     Dosage: UNK
     Dates: start: 20051208

REACTIONS (1)
  - Abdominal hernia [Unknown]
